FAERS Safety Report 7611100-7 (Version None)
Quarter: 2011Q3

REPORT INFORMATION
  Report Type: 
  Country: None (occurrence: None)
  Receive Date: 20110715
  Receipt Date: 20110712
  Transmission Date: 20111222
  Serious: Yes (Other)
  Sender: FDA-Public Use
  Company Number: US-PFIZER INC-2011157839

PATIENT
  Age: 21 Year
  Sex: Female

DRUGS (3)
  1. INSULIN [Concomitant]
     Indication: TYPE 1 DIABETES MELLITUS
     Dosage: UNK
  2. LYRICA [Suspect]
     Indication: COMPLEX REGIONAL PAIN SYNDROME
     Dosage: UNK
     Dates: start: 20080101
  3. VICODIN [Concomitant]
     Indication: PAIN
     Dosage: UNK

REACTIONS (3)
  - BLOOD GLUCOSE ABNORMAL [None]
  - COMPLEX REGIONAL PAIN SYNDROME [None]
  - WEIGHT DECREASED [None]
